FAERS Safety Report 5504071-0 (Version None)
Quarter: 2007Q4

REPORT INFORMATION
  Report Type: 
  Country: None (occurrence: None)
  Receive Date: 20071101
  Receipt Date: 20070904
  Transmission Date: 20080405
  Serious: Yes (Other)
  Sender: FDA-Public Use
  Company Number: B0485560A

PATIENT
  Age: 60 Year
  Sex: Male

DRUGS (3)
  1. NIQUITIN CQ 2MG LOZENGE [Suspect]
     Dosage: 2MG TWELVE TIMES PER DAY
  2. BISOPROLOL FUMARATE [Concomitant]
     Indication: BLOOD PRESSURE INADEQUATELY CONTROLLED
     Dosage: 1.25MG PER DAY
  3. ASPIRIN [Concomitant]
     Dosage: 75MG PER DAY

REACTIONS (1)
  - OPTIC ISCHAEMIC NEUROPATHY [None]
